FAERS Safety Report 5012339-X (Version None)
Quarter: 2006Q2

REPORT INFORMATION
  Report Type: 
  Country: None (occurrence: None)
  Receive Date: 20060525
  Receipt Date: 20060525
  Transmission Date: 20061013
  Serious: Yes (Hospitalization)
  Sender: FDA-Public Use
  Company Number: None

PATIENT
  Age: 74 Year
  Sex: Male
  Weight: 95.709 kg

DRUGS (4)
  1. COUMADIN [Suspect]
     Indication: ANTICOAGULANT THERAPY
     Dosage: 3MG PO QD
     Route: 048
     Dates: start: 20060217, end: 20060226
  2. METOPROLOL [Concomitant]
  3. AMBIEN [Concomitant]
  4. SIMVASTATIN [Concomitant]

REACTIONS (5)
  - ASTHENIA [None]
  - BRADYCARDIA [None]
  - CATHETER SITE HAEMORRHAGE [None]
  - DIZZINESS [None]
  - LOSS OF CONSCIOUSNESS [None]
